APPROVED DRUG PRODUCT: HYDROCORTISONE ACETATE
Active Ingredient: HYDROCORTISONE ACETATE
Strength: 2.5%
Dosage Form/Route: CREAM;TOPICAL
Application: A040259 | Product #001
Applicant: IMPERIUM PHARMACEUTICALS LLC
Approved: Jul 29, 1999 | RLD: No | RS: No | Type: DISCN